FAERS Safety Report 5822866-0 (Version None)
Quarter: 2008Q3

REPORT INFORMATION
  Report Type: 
  Country: None (occurrence: None)
  Receive Date: 20080724
  Receipt Date: 20080724
  Transmission Date: 20090109
  Serious: No
  Sender: FDA-Public Use
  Company Number: None

PATIENT
  Age: 27 Year
  Sex: Male
  Weight: 118.8424 kg

DRUGS (1)
  1. ARICEPT [Suspect]
     Indication: AMNESIA
     Dosage: 5MG QD PO
     Route: 048
     Dates: start: 20080710, end: 20080718

REACTIONS (2)
  - MIDDLE INSOMNIA [None]
  - MUSCLE SPASMS [None]
